FAERS Safety Report 25715262 (Version 1)
Quarter: 2025Q3

REPORT INFORMATION
  Report Type: Report from Study
  Country: US (occurrence: US)
  Receive Date: 20250822
  Receipt Date: 20250822
  Transmission Date: 20251021
  Serious: Yes (Hospitalization)
  Sender: ADAMAS PHARMA
  Company Number: US-ADM-ADM202508-003081

PATIENT
  Age: 54 Year
  Sex: Female

DRUGS (10)
  1. GOCOVRI [Suspect]
     Active Substance: AMANTADINE
     Indication: Dyskinesia
     Dosage: NIGHTLY FOR 7 DAYS
     Route: 048
     Dates: start: 20250722
  2. GOCOVRI [Suspect]
     Active Substance: AMANTADINE
     Indication: Parkinson^s disease
     Dosage: NIGHTLY FOR 21 DAYS
     Route: 048
     Dates: start: 202507, end: 2025
  3. ATORVASTATIN [Concomitant]
     Active Substance: ATORVASTATIN
  4. BOTOX [Concomitant]
     Active Substance: ONABOTULINUMTOXINA
  5. CARBIDOPA\LEVODOPA [Concomitant]
     Active Substance: CARBIDOPA\LEVODOPA
  6. CARBIDOPA\LEVODOPA [Concomitant]
     Active Substance: CARBIDOPA\LEVODOPA
  7. ENTACAPONE [Concomitant]
     Active Substance: ENTACAPONE
  8. LEVETIRACETAM [Concomitant]
     Active Substance: LEVETIRACETAM
  9. ROPINIROLE [Concomitant]
     Active Substance: ROPINIROLE
  10. VITAMIN D [Concomitant]
     Active Substance: VITAMIN D NOS

REACTIONS (4)
  - Chills [Unknown]
  - Hyperhidrosis [Unknown]
  - Muscle rigidity [Unknown]
  - Seizure [Unknown]
